FAERS Safety Report 4453587-7 (Version None)
Quarter: 2004Q3

REPORT INFORMATION
  Report Type: 
  Country: None (occurrence: None)
  Receive Date: 20040920
  Receipt Date: 20040903
  Transmission Date: 20050211
  Serious: Yes (Life-Threatening)
  Sender: FDA-Public Use
  Company Number: PHBS2004CA11668

PATIENT
  Age: 63 Year
  Sex: Male

DRUGS (7)
  1. DIOVAN HCT [Suspect]
     Dosage: VAL 160 / HCT 12.5 MG/DAY
     Route: 048
     Dates: start: 20020801, end: 20021101
  2. LITHANE [Concomitant]
     Dosage: 300 MG, BID
  3. ASPIRIN [Concomitant]
     Dosage: 325 MG, QD
  4. ALTACE [Concomitant]
     Dosage: 10 MG, QD
  5. LIPITOR [Concomitant]
     Dosage: 10 MG, QD
  6. TENORMIN [Concomitant]
  7. INDOMETHACIN [Concomitant]
     Dosage: 50 MG, TID

REACTIONS (4)
  - DEHYDRATION [None]
  - DIARRHOEA [None]
  - DRUG LEVEL INCREASED [None]
  - LOSS OF CONSCIOUSNESS [None]
